FAERS Safety Report 10740031 (Version 2)
Quarter: 2021Q2

REPORT INFORMATION
  Report Type: Spontaneous
  Country: US (occurrence: US)
  Receive Date: 20150127
  Receipt Date: 20210610
  Transmission Date: 20210716
  Serious: Yes (Hospitalization, Other)
  Sender: FDA-Public Use
  Company Number: US-AUROBINDO-AUR-APL-2015-00403

PATIENT
  Age: 52 Year
  Sex: Female

DRUGS (1)
  1. TRIMETHOPRIM+SULFAMETHOXAZOLE [Suspect]
     Active Substance: SULFAMETHOXAZOLE\TRIMETHOPRIM
     Indication: FOLLICULITIS
     Dosage: UNK
     Route: 065

REACTIONS (14)
  - Blood lactic acid increased [Recovered/Resolved]
  - C-reactive protein increased [Recovered/Resolved]
  - Emotional distress [Recovered/Resolved]
  - Sinus tachycardia [Recovered/Resolved]
  - Blood prolactin increased [Recovered/Resolved]
  - Metabolic acidosis [Recovered/Resolved]
  - Tryptase increased [Recovered/Resolved]
  - Vomiting [Recovered/Resolved]
  - Urticaria [Recovered/Resolved]
  - Oropharyngeal discomfort [Recovered/Resolved]
  - Dyspnoea [Recovered/Resolved]
  - Pyrexia [Recovered/Resolved]
  - Nausea [Recovered/Resolved]
  - Anaphylactic shock [Recovered/Resolved]
